FAERS Safety Report 6417332-8 (Version None)
Quarter: 2009Q4

REPORT INFORMATION
  Report Type: 
  Country: None (occurrence: None)
  Receive Date: 20091028
  Receipt Date: 20091022
  Transmission Date: 20100525
  Serious: Yes (Death)
  Sender: FDA-Public Use
  Company Number: PHEH2009US14237

PATIENT
  Sex: Male

DRUGS (2)
  1. AFINITOR [Suspect]
     Dosage: UNK
     Dates: start: 20090919
  2. MORPHINE [Suspect]

REACTIONS (1)
  - CARDIAC DISORDER [None]
